FAERS Safety Report 21478013 (Version 1)
Quarter: 2022Q4

REPORT INFORMATION
  Report Type: Spontaneous
  Country: NO (occurrence: NO)
  Receive Date: 20221019
  Receipt Date: 20221019
  Transmission Date: 20230112
  Serious: Yes (Other)
  Sender: FDA-Public Use
  Company Number: NO-NALPROPION PHARMACEUTICALS INC.-NO-2022CUR023290

PATIENT
  Age: 45 Year
  Sex: Male
  Weight: 130 kg

DRUGS (2)
  1. BUPROPION HYDROCHLORIDE\NALTREXONE HYDROCHLORIDE [Suspect]
     Active Substance: BUPROPION HYDROCHLORIDE\NALTREXONE HYDROCHLORIDE
     Indication: Overweight
     Dosage: 8/90MG, 3 TABLETS PER DAY
     Route: 065
     Dates: start: 20220707
  2. ALLOPURINOL [Concomitant]
     Active Substance: ALLOPURINOL
     Indication: Gout
     Dosage: ONCE DAILY

REACTIONS (5)
  - Suicidal ideation [Recovering/Resolving]
  - Crying [Recovering/Resolving]
  - Affect lability [Recovering/Resolving]
  - Emotional poverty [Recovering/Resolving]
  - Negative thoughts [Recovering/Resolving]

NARRATIVE: CASE EVENT DATE: 20220701
